FAERS Safety Report 12854646 (Version 1)
Quarter: 2016Q4

REPORT INFORMATION
  Report Type: Spontaneous
  Country: US (occurrence: US)
  Receive Date: 20161017
  Receipt Date: 20161017
  Transmission Date: 20170207
  Serious: No
  Sender: FDA-Public Use
  Company Number: US-PERRIGO-16US015399

PATIENT
  Age: 49 Year
  Sex: Male
  Weight: 68.27 kg

DRUGS (2)
  1. NICOTINE POLACRILEX [Suspect]
     Active Substance: NICOTINE
     Indication: SMOKING CESSATION THERAPY
     Dosage: 4 MG, CONTINUOUSLY ONE AFTER ANOTHER
     Route: 002
     Dates: start: 20160414, end: 20160418
  2. NICOTINE POLACRILEX [Suspect]
     Active Substance: NICOTINE
     Dosage: 32 MG, SINGLE
     Route: 002
     Dates: start: 20160419, end: 20160419

REACTIONS (4)
  - Pain in jaw [Not Recovered/Not Resolved]
  - Drug ineffective [Unknown]
  - Overdose [Recovered/Resolved]
  - Wrong technique in product usage process [Recovered/Resolved]

NARRATIVE: CASE EVENT DATE: 20160414
